FAERS Safety Report 24275330 (Version 1)
Quarter: 2024Q3

REPORT INFORMATION
  Report Type: Spontaneous
  Country: BR (occurrence: BR)
  Receive Date: 20240903
  Receipt Date: 20240903
  Transmission Date: 20241017
  Serious: Yes (Hospitalization, Other)
  Sender: GLENMARK
  Company Number: BR-MLMSERVICE-20190920-1970152-1

PATIENT

DRUGS (8)
  1. TACROLIMUS [Suspect]
     Active Substance: TACROLIMUS
     Indication: Immunosuppressant drug therapy
     Dosage: UNK
     Route: 065
     Dates: start: 2014
  2. THYMOGLOBULIN [Suspect]
     Active Substance: LAPINE T-LYMPHOCYTE IMMUNE GLOBULIN
     Indication: Immunosuppressant drug therapy
     Dosage: UNK
     Route: 065
     Dates: start: 2014
  3. MYCOPHENOLATE SODIUM [Suspect]
     Active Substance: MYCOPHENOLATE SODIUM
     Indication: Immunosuppressant drug therapy
     Dosage: UNK
     Route: 065
     Dates: start: 2014
  4. PREDNISONE [Suspect]
     Active Substance: PREDNISONE
     Indication: Immunosuppressant drug therapy
     Dosage: UNK
     Route: 065
     Dates: start: 2014
  5. GANCICLOVIR [Concomitant]
     Active Substance: GANCICLOVIR
     Indication: Prophylaxis
     Dosage: 5 MILLIGRAM/KILOGRAM, TWO TIMES A WEEK
     Route: 065
     Dates: start: 2014
  6. GANCICLOVIR [Concomitant]
     Active Substance: GANCICLOVIR
     Dosage: 5 MILLIGRAM/KILOGRAM, THREE TIMES A WEEK
     Route: 065
     Dates: start: 2014
  7. GANCICLOVIR [Concomitant]
     Active Substance: GANCICLOVIR
     Dosage: 5 MILLIGRAM/KILOGRAM, (EVERY 12 HOURS).
     Route: 065
     Dates: start: 2014
  8. GANCICLOVIR [Concomitant]
     Active Substance: GANCICLOVIR
     Dosage: 5 MILLIGRAM/KILOGRAM, QW
     Route: 065
     Dates: start: 2014

REACTIONS (7)
  - Haemophagocytic lymphohistiocytosis [Recovered/Resolved]
  - Pericardial effusion [Unknown]
  - Pleural effusion [Unknown]
  - Cytomegalovirus infection [Recovered/Resolved]
  - Cytomegalovirus nephritis [Recovered/Resolved]
  - BK virus infection [Recovered/Resolved]
  - Escherichia infection [Recovered/Resolved]
